FAERS Safety Report 4485195-6 (Version None)
Quarter: 2004Q4

REPORT INFORMATION
  Report Type: 
  Country: None (occurrence: None)
  Receive Date: 20041026
  Receipt Date: 20040409
  Transmission Date: 20050328
  Serious: No
  Sender: FDA-Public Use
  Company Number: US-BRISTOL-MYERS SQUIBB COMPANY-12556833

PATIENT
  Age: 38 Year
  Sex: Male
  Weight: 82 kg

DRUGS (2)
  1. GLUCOPHAGE XR [Suspect]
     Indication: DIABETES MELLITUS
     Dosage: DOSE INCREASED TO 2000 MILLIGRAMS ON UNSPECIFIED DATE.
     Route: 048
  2. AMARYL [Concomitant]
     Dosage: DOSE INCREASED TO 4 MILLIGRAMS TWICE DAILY ON UNSPECIFIED DATE

REACTIONS (1)
  - BLOOD GLUCOSE INCREASED [None]
